FAERS Safety Report 21171301 (Version 3)
Quarter: 2022Q3

REPORT INFORMATION
  Report Type: Spontaneous
  Country: US (occurrence: US)
  Receive Date: 20220804
  Receipt Date: 20220824
  Transmission Date: 20221026
  Serious: No
  Sender: FDA-Public Use
  Company Number: US-BRISTOL-MYERS SQUIBB COMPANY-2022-079182

PATIENT
  Age: 71 Year
  Sex: Female

DRUGS (2)
  1. REVLIMID [Suspect]
     Active Substance: LENALIDOMIDE
     Indication: Breast pain
     Route: 048
     Dates: start: 20200421
  2. REVLIMID [Suspect]
     Active Substance: LENALIDOMIDE
     Dosage: FREQUENCY : TAKE 1 CAPSULE BY MOUTH EVERY DAY FOR A 28 DAY CYCLE.
     Route: 048

REACTIONS (4)
  - Abdominal pain [Unknown]
  - Urinary tract infection [Unknown]
  - COVID-19 [Unknown]
  - Intentional product use issue [Unknown]
